FAERS Safety Report 7922178 (Version 3)
Quarter: 2013Q4

REPORT INFORMATION
  Report Type: Spontaneous
  Country: US (occurrence: US)
  Receive Date: 20110429
  Receipt Date: 20131107
  Transmission Date: 20140711
  Serious: Yes (Hospitalization, Other)
  Sender: FDA-Public Use
  Company Number: US-ASTRAZENECA-2011SE09796

PATIENT
  Age: 64 Year
  Sex: Male
  Weight: 63.5 kg

DRUGS (12)
  1. NEXIUM [Suspect]
     Route: 048
  2. PRILOSEC [Suspect]
     Route: 048
  3. ATENOLOL [Suspect]
     Route: 065
  4. LISINOPRIL [Suspect]
     Route: 048
  5. CRESTOR [Suspect]
     Route: 048
  6. DOXAZOSIN MESYLATE [Concomitant]
  7. ESCITALOPRAM [Concomitant]
  8. IMPAPAMIDE [Concomitant]
     Dosage: 1.25, DAILY
  9. ALLOPURINOL [Concomitant]
  10. MELOXICAM [Concomitant]
  11. DULERA [Concomitant]
     Dosage: DAILY
  12. HYDROCODONE [Concomitant]
     Dosage: 10-500MG PRN

REACTIONS (8)
  - Cerebrovascular accident [Unknown]
  - Hernia [Unknown]
  - Nephrolithiasis [Unknown]
  - Dyspepsia [Unknown]
  - Dyspepsia [Unknown]
  - Chronic obstructive pulmonary disease [Unknown]
  - Drug ineffective [Unknown]
  - Drug dose omission [Unknown]
